FAERS Safety Report 9831048 (Version 3)
Quarter: 2014Q1

REPORT INFORMATION
  Report Type: Report from Study
  Country: DE (occurrence: DE)
  Receive Date: 20140120
  Receipt Date: 20140310
  Transmission Date: 20141002
  Serious: Yes (Death, Other)
  Sender: FDA-Public Use
  Company Number: PHHY2014DE005273

PATIENT
  Sex: Male
  Weight: 85 kg

DRUGS (2)
  1. ICL670A [Suspect]
     Indication: IRON OVERLOAD
     Dosage: 500 MG
     Dates: end: 20130813
  2. ICL670A [Suspect]
     Indication: MYELODYSPLASTIC SYNDROME
     Dosage: 500 MG, TID, DAILY
     Route: 048
     Dates: start: 20121018

REACTIONS (2)
  - Death [Fatal]
  - Dyspnoea [Recovered/Resolved]
